FAERS Safety Report 16551175 (Version 1)
Quarter: 2019Q3

REPORT INFORMATION
  Report Type: Spontaneous
  Country: US (occurrence: US)
  Receive Date: 20190529
  Receipt Date: 20190529
  Transmission Date: 20191004
  Serious: No
  Sender: FDA-Public Use
  Company Number: None

PATIENT
  Age: 65 Year
  Sex: Female

DRUGS (1)
  1. PROLIA [Suspect]
     Active Substance: DENOSUMAB
     Indication: OSTEOPOROSIS
     Dates: start: 20180612

REACTIONS (3)
  - Temporomandibular joint syndrome [None]
  - Condition aggravated [None]
  - Pain in jaw [None]

NARRATIVE: CASE EVENT DATE: 20180612
